FAERS Safety Report 12154602 (Version 1)
Quarter: 2016Q1

REPORT INFORMATION
  Report Type: Spontaneous
  Country: US (occurrence: None)
  Receive Date: 20160304
  Receipt Date: 20160304
  Transmission Date: 20160526
  Serious: Yes (Other)
  Sender: FDA-Public Use
  Company Number: None

PATIENT
  Age: 60 Year
  Sex: Male
  Weight: 97.52 kg

DRUGS (4)
  1. RITUXAN [Suspect]
     Active Substance: RITUXIMAB
     Indication: RHEUMATOID ARTHRITIS
     Dosage: INFUSION DAY ONE, DAY 15 INTO A VEIN
     Route: 042
  2. RITUXAN [Suspect]
     Active Substance: RITUXIMAB
     Indication: NON-HODGKIN^S LYMPHOMA
     Dosage: INFUSION DAY ONE, DAY 15 INTO A VEIN
     Route: 042
  3. TREMOR RX [Concomitant]
  4. HBP RX [Concomitant]

REACTIONS (1)
  - Latent tuberculosis [None]

NARRATIVE: CASE EVENT DATE: 20151019
